FAERS Safety Report 5244387-9 (Version None)
Quarter: 2007Q1

REPORT INFORMATION
  Report Type: 
  Country: None (occurrence: None)
  Receive Date: 20070222
  Receipt Date: 20070212
  Transmission Date: 20070707
  Serious: Yes (Other)
  Sender: FDA-Public Use
  Company Number: US-PFIZER INC-2007011454

PATIENT
  Sex: Male

DRUGS (3)
  1. LIPITOR [Suspect]
  2. SYNTHROID [Concomitant]
  3. ASPIRIN [Concomitant]

REACTIONS (2)
  - BACK PAIN [None]
  - COLECTOMY [None]
